FAERS Safety Report 7385653-0 (Version None)
Quarter: 2011Q1

REPORT INFORMATION
  Report Type: 
  Country: None (occurrence: None)
  Receive Date: 20110331
  Receipt Date: 20110322
  Transmission Date: 20110831
  Serious: No
  Sender: FDA-Public Use
  Company Number: US-BIOGENIDEC-2011BI010921

PATIENT
  Sex: Female

DRUGS (2)
  1. AVONEX [Suspect]
     Indication: MULTIPLE SCLEROSIS
     Route: 030
     Dates: start: 19960901
  2. AVONEX [Suspect]
     Route: 030
     Dates: end: 20100101

REACTIONS (10)
  - MEMORY IMPAIRMENT [None]
  - GAIT DISTURBANCE [None]
  - FALL [None]
  - URINARY INCONTINENCE [None]
  - VISUAL IMPAIRMENT [None]
  - OEDEMA PERIPHERAL [None]
  - FEELING HOT [None]
  - INJECTION SITE SCAR [None]
  - ERYTHEMA [None]
  - PAIN IN EXTREMITY [None]
